FAERS Safety Report 5162713-6 (Version None)
Quarter: 2006Q4

REPORT INFORMATION
  Report Type: 
  Country: None (occurrence: None)
  Receive Date: 20061201
  Receipt Date: 20060920
  Transmission Date: 20070319
  Serious: No
  Sender: FDA-Public Use
  Company Number: US-GLAXOSMITHKLINE-A0621098A

PATIENT
  Sex: Male

DRUGS (1)
  1. AUGMENTIN '125' [Suspect]
     Indication: ABSCESS
     Dosage: 875MG TWICE PER DAY
     Dates: start: 20060901, end: 20060901

REACTIONS (1)
  - NAUSEA [None]
